FAERS Safety Report 5754123-5 (Version None)
Quarter: 2008Q2

REPORT INFORMATION
  Report Type: 
  Country: None (occurrence: None)
  Receive Date: 20080530
  Receipt Date: 20080516
  Transmission Date: 20081010
  Serious: Yes (Hospitalization)
  Sender: FDA-Public Use
  Company Number: FR-ROCHE-565978

PATIENT
  Sex: Female
  Weight: 65 kg

DRUGS (6)
  1. GRANISETRON  HCL [Suspect]
     Dosage: 2 MG
     Route: 048
     Dates: start: 20051214
  2. RITUXIMAB [Suspect]
     Dosage: 650 MG
     Route: 042
     Dates: start: 20051214
  3. DOXORUBICIN HCL [Suspect]
     Dosage: 86 MG
     Route: 042
     Dates: start: 20051214
  4. CYCLOPHOSPHAMIDE [Suspect]
     Dosage: 1300 MG
     Route: 042
     Dates: start: 20051214
  5. VINCRISTINE [Suspect]
     Dosage: 2 MG
     Route: 042
     Dates: start: 20051214
  6. PREDNISONE [Suspect]
     Dosage: 100 MG
     Route: 048
     Dates: start: 20051214

REACTIONS (1)
  - GASTROINTESTINAL HYPOMOTILITY [None]
